FAERS Safety Report 6659911-9 (Version None)
Quarter: 2010Q1

REPORT INFORMATION
  Report Type: 
  Country: None (occurrence: None)
  Receive Date: 20100330
  Receipt Date: 20100330
  Transmission Date: 20100710
  Serious: Yes (Other)
  Sender: FDA-Public Use
  Company Number: None

PATIENT
  Sex: Female
  Weight: 63.5036 kg

DRUGS (2)
  1. LEVAQUIN [Suspect]
     Indication: SINUS DISORDER
     Dosage: 10 PILLS ONCE A DAY
     Dates: start: 20100311, end: 20100320
  2. LEVAQUIN [Suspect]
     Indication: SINUSITIS
     Dosage: 10 PILLS ONCE A DAY
     Dates: start: 20100311, end: 20100320

REACTIONS (12)
  - ARTHRALGIA [None]
  - ARTHROPATHY [None]
  - FEELING ABNORMAL [None]
  - GAIT DISTURBANCE [None]
  - HYPOAESTHESIA [None]
  - INSOMNIA [None]
  - MUSCLE DISORDER [None]
  - MUSCULOSKELETAL STIFFNESS [None]
  - PAIN [None]
  - PAIN IN EXTREMITY [None]
  - PARAESTHESIA [None]
  - TENDON DISORDER [None]
